FAERS Safety Report 9981832 (Version 1)
Quarter: 2014Q1

REPORT INFORMATION
  Report Type: Report from Study
  Country: US (occurrence: US)
  Receive Date: 20140307
  Receipt Date: 20140307
  Transmission Date: 20141002
  Serious: No
  Sender: FDA-Public Use
  Company Number: US-ABBVIE-13P-163-1177849-00

PATIENT
  Age: 48 Year
  Sex: Male

DRUGS (5)
  1. HUMIRA [Suspect]
     Indication: CROHN^S DISEASE
     Dates: start: 20131120, end: 20131120
  2. HUMIRA [Suspect]
     Dosage: TOOK ONE DOSE, AND HAD PARTIAL INJECTION
     Dates: start: 20131204
  3. LISINOPRIL [Concomitant]
     Indication: BLOOD PRESSURE
  4. AZATHIOPRINE [Concomitant]
     Indication: RHEUMATOID ARTHRITIS
  5. TRAMADOL [Concomitant]
     Indication: PAIN

REACTIONS (4)
  - Wrong technique in drug usage process [Unknown]
  - Incorrect dose administered [Unknown]
  - Drug dose omission [Unknown]
  - Injection site pain [Recovered/Resolved]
